FAERS Safety Report 22368956 (Version 1)
Quarter: 2023Q2

REPORT INFORMATION
  Report Type: Spontaneous
  Country: None (occurrence: DE)
  Receive Date: 20230525
  Receipt Date: 20230525
  Transmission Date: 20230722
  Serious: Yes (Hospitalization, Other)
  Sender: FDA-Public Use
  Company Number: DE-Ascend Therapeutics US, LLC-2142013

PATIENT
  Age: 18 Year
  Sex: Female

DRUGS (2)
  1. ANDROGEL [Suspect]
     Active Substance: TESTOSTERONE
     Indication: Ill-defined disorder
     Route: 065
     Dates: start: 2023, end: 202304
  2. TESTOSTERONE [Suspect]
     Active Substance: TESTOSTERONE
     Route: 065
     Dates: start: 2023, end: 202304

REACTIONS (6)
  - Abdominal pain [Unknown]
  - Noninfective oophoritis [Unknown]
  - Aggression [Unknown]
  - Intentional product misuse [None]
  - Product use issue [None]
  - Product use in unapproved indication [None]

NARRATIVE: CASE EVENT DATE: 20230101
